FAERS Safety Report 10203412 (Version 1)
Quarter: 2014Q2

REPORT INFORMATION
  Report Type: Spontaneous
  Country: US (occurrence: US)
  Receive Date: 20140529
  Receipt Date: 20140529
  Transmission Date: 20141212
  Serious: Yes (Other)
  Sender: FDA-Public Use
  Company Number: US-RB-066340-14

PATIENT
  Age: 80 Year
  Sex: Female

DRUGS (1)
  1. DELSYM [Suspect]
     Indication: PRODUCT USED FOR UNKNOWN INDICATION
     Dosage: TOOK ONE 1/2 DOSE OF THE PRODUCT ON 21-MAY-2014
     Route: 048
     Dates: start: 20140521

REACTIONS (1)
  - Epistaxis [Recovered/Resolved]
